FAERS Safety Report 15756131 (Version 1)
Quarter: 2018Q4

REPORT INFORMATION
  Report Type: Spontaneous
  Country: US (occurrence: US)
  Receive Date: 20181224
  Receipt Date: 20181224
  Transmission Date: 20190205
  Serious: No
  Sender: FDA-Public Use
  Company Number: US-JNJFOC-20181205885

PATIENT

DRUGS (2)
  1. TYLENOL EXTRA STRENGTH [Suspect]
     Active Substance: ACETAMINOPHEN
     Indication: BACK PAIN
     Dosage: 3-4 PILLS
     Route: 065
  2. IBUPREOFEN [Concomitant]
     Indication: BACK PAIN
     Route: 065

REACTIONS (1)
  - Incorrect dose administered [Unknown]
